FAERS Safety Report 25369350 (Version 1)
Quarter: 2025Q2

REPORT INFORMATION
  Report Type: Spontaneous
  Country: US (occurrence: None)
  Receive Date: 20250527
  Receipt Date: 20250527
  Transmission Date: 20250717
  Serious: Yes (Other)
  Sender: FDA-CTU
  Company Number: None

PATIENT
  Age: 60 Year
  Sex: Female
  Weight: 66.6 kg

DRUGS (21)
  1. FLONASE ALLERGY RELIEF [Suspect]
     Active Substance: FLUTICASONE PROPIONATE
     Indication: Seasonal allergy
     Dosage: FREQUENCY : DAILY;?
     Route: 055
     Dates: start: 20250401, end: 20250525
  2. FLONASE ALLERGY RELIEF [Suspect]
     Active Substance: FLUTICASONE PROPIONATE
     Indication: Middle ear effusion
  3. SERTRALINE [Concomitant]
     Active Substance: SERTRALINE HYDROCHLORIDE
  4. RIZATRIPTAN [Concomitant]
     Active Substance: RIZATRIPTAN
  5. AllerTec (Zyrtec) [Concomitant]
  6. MELATONIN [Concomitant]
     Active Substance: MELATONIN
  7. GLUCOSAMINE [Concomitant]
     Active Substance: GLUCOSAMINE
  8. CHONDROITIN [Concomitant]
     Active Substance: CHONDROITIN
  9. DIMETHYL SULFONE [Concomitant]
     Active Substance: DIMETHYL SULFONE
  10. HYALURONIC ACID [Concomitant]
     Active Substance: HYALURONIC ACID
  11. mAGNESIUM l-tHREONATE [Concomitant]
  12. iODINE PLUS [Concomitant]
  13. VIT. A [Concomitant]
  14. VITAMIN D3 [Concomitant]
     Active Substance: CHOLECALCIFEROL
  15. VIT K2 [Concomitant]
  16. RIBOFLAVIN (B2) [Concomitant]
  17. VITAMIN B6 [Concomitant]
     Active Substance: PYRIDOXINE HYDROCHLORIDE
  18. FOLATE (B9) [Concomitant]
  19. VITAMIN B12 [Concomitant]
     Active Substance: CYANOCOBALAMIN
  20. tRIMETHYLGLYCINE [Concomitant]
  21. KRILL OIL [Concomitant]
     Active Substance: DIETARY SUPPLEMENT\KRILL OIL

REACTIONS (6)
  - Depression [None]
  - Anxiety [None]
  - Conversion disorder [None]
  - Decreased appetite [None]
  - Apathy [None]
  - Therapy interrupted [None]

NARRATIVE: CASE EVENT DATE: 20250515
